FAERS Safety Report 23779000 (Version 1)
Quarter: 2024Q2

REPORT INFORMATION
  Report Type: Spontaneous
  Country: KR (occurrence: None)
  Receive Date: 20240424
  Receipt Date: 20240424
  Transmission Date: 20240715
  Serious: Yes (Other)
  Sender: FDA-Public Use
  Company Number: 2024A091762

PATIENT
  Age: 57 Year
  Sex: Female

DRUGS (13)
  1. GEFITINIB [Suspect]
     Active Substance: GEFITINIB
     Indication: Non-small cell lung cancer
     Route: 048
  2. GEFITINIB [Suspect]
     Active Substance: GEFITINIB
     Indication: EGFR gene mutation
     Route: 048
  3. OSIMERTINIB [Suspect]
     Active Substance: OSIMERTINIB
     Indication: Cranial nerve disorder
     Route: 048
  4. OSIMERTINIB [Suspect]
     Active Substance: OSIMERTINIB
     Indication: Metastases to meninges
     Route: 048
  5. OSIMERTINIB [Suspect]
     Active Substance: OSIMERTINIB
     Indication: Cranial nerve disorder
     Route: 048
  6. OSIMERTINIB [Suspect]
     Active Substance: OSIMERTINIB
     Indication: Metastases to meninges
     Route: 048
  7. ATEZOLIZUMAB [Concomitant]
     Active Substance: ATEZOLIZUMAB
  8. BEVACIZUMAB [Concomitant]
     Active Substance: BEVACIZUMAB
  9. PACLITAXEL [Concomitant]
     Active Substance: PACLITAXEL
  10. CARBOPLATIN [Concomitant]
     Active Substance: CARBOPLATIN
     Indication: Cranial nerve disorder
  11. CARBOPLATIN [Concomitant]
     Active Substance: CARBOPLATIN
     Indication: Metastases to meninges
  12. PEMETREXED [Concomitant]
     Active Substance: PEMETREXED
     Indication: Cranial nerve disorder
  13. PEMETREXED [Concomitant]
     Active Substance: PEMETREXED
     Indication: Metastases to meninges

REACTIONS (3)
  - Malignant neoplasm progression [Unknown]
  - Metastases to meninges [Unknown]
  - Diarrhoea [Recovering/Resolving]
